FAERS Safety Report 16692143 (Version 2)
Quarter: 2019Q3

REPORT INFORMATION
  Report Type: Report from Study
  Country: CN (occurrence: CN)
  Receive Date: 20190812
  Receipt Date: 20190822
  Transmission Date: 20191004
  Serious: Yes (Hospitalization)
  Sender: FDA-Public Use
  Company Number: CN-BAYER-2019-127467

PATIENT
  Age: 65 Year
  Sex: Male
  Weight: 58 kg

DRUGS (39)
  1. COPANLISIB. [Suspect]
     Active Substance: COPANLISIB
     Indication: NON-HODGKIN^S LYMPHOMA RECURRENT
     Dosage: 60 MG, QD
     Route: 042
     Dates: start: 20190701, end: 20190701
  2. BENDAMUSTINE [Suspect]
     Active Substance: BENDAMUSTINE
     Indication: NON-HODGKIN^S LYMPHOMA RECURRENT
     Dosage: 152 MG, QD
     Route: 042
     Dates: start: 20190701, end: 20190701
  3. OMEPRAZOLE. [Concomitant]
     Active Substance: OMEPRAZOLE
     Indication: GASTROINTESTINAL DISORDER PROPHYLAXIS
     Dosage: 40 MG, BID
     Route: 042
     Dates: start: 20190813, end: 20190814
  4. FISH OIL [Concomitant]
     Active Substance: FISH OIL
     Indication: PROPHYLAXIS
     Dosage: 100 ML, QD
     Route: 042
     Dates: start: 20190730, end: 20190806
  5. ALBUMIN PREPARED FROM HUMAN PLASMA [Concomitant]
     Indication: HYPOALBUMINAEMIA
     Dosage: 100 ML, QD
     Route: 042
     Dates: start: 20190704, end: 20190706
  6. POTASSIUM CHLORIDE. [Concomitant]
     Active Substance: POTASSIUM CHLORIDE
     Indication: HYPOKALAEMIA
     Dosage: 30 ML, QD
     Route: 048
     Dates: start: 20190705, end: 20190705
  7. POTASSIUM CHLORIDE. [Concomitant]
     Active Substance: POTASSIUM CHLORIDE
     Indication: HYPOKALAEMIA
     Dosage: 7 ML, QD
     Route: 042
     Dates: start: 20190705, end: 20190705
  8. BENDAMUSTINE [Suspect]
     Active Substance: BENDAMUSTINE
     Indication: NON-HODGKIN^S LYMPHOMA RECURRENT
     Dosage: 145 MG, QD
     Route: 042
     Dates: start: 20190814, end: 20190814
  9. TROPISETRON [Concomitant]
     Active Substance: TROPISETRON
     Indication: GASTROINTESTINAL DISORDER PROPHYLAXIS
     Dosage: 4 MG, BID
     Route: 042
     Dates: start: 20190813, end: 20190814
  10. FUROSEMIDE. [Concomitant]
     Active Substance: FUROSEMIDE
     Indication: DIURETIC THERAPY
     Dosage: 20 MG, QD
     Route: 048
     Dates: start: 20190810, end: 20190810
  11. RITUXIMAB. [Suspect]
     Active Substance: RITUXIMAB
     Indication: NON-HODGKIN^S LYMPHOMA RECURRENT
     Dosage: 604 MG, QD
     Dates: start: 20190813, end: 20190813
  12. BENDAMUSTINE [Suspect]
     Active Substance: BENDAMUSTINE
     Indication: NON-HODGKIN^S LYMPHOMA RECURRENT
     Dosage: 145 MG, QD
     Route: 042
     Dates: start: 20190813, end: 20190813
  13. CELEBREX [Concomitant]
     Active Substance: CELECOXIB
     Indication: PROPHYLAXIS
     Dosage: 200 MG, QD
     Route: 048
     Dates: start: 20190813, end: 20190813
  14. KABIVEN PI [Concomitant]
     Indication: PROPHYLAXIS
     Dosage: 1026 ML, QD
     Route: 040
     Dates: start: 20190701, end: 20190710
  15. SULPERAZON [Concomitant]
     Active Substance: CEFOPERAZONE SODIUM\SULBACTAM SODIUM
     Indication: PROPHYLAXIS
     Dosage: 3000 MG, Q8HR
     Route: 042
     Dates: start: 20190805
  16. KABIVEN PI [Concomitant]
     Indication: PROPHYLAXIS
     Dosage: 1026 MG, QD
     Route: 042
     Dates: start: 20190730, end: 20190806
  17. ALBUMIN PREPARED FROM HUMAN PLASMA [Concomitant]
     Indication: HYPOALBUMINAEMIA
     Dosage: 100 ML, QD
     Route: 042
     Dates: start: 20190810, end: 20190810
  18. SODIUM CHLORIDE. [Concomitant]
     Active Substance: SODIUM CHLORIDE
     Indication: HYPONATRAEMIA
     Dosage: 50 MG, QD
     Route: 042
     Dates: start: 20190705, end: 20190705
  19. BICARBONATE [Concomitant]
     Active Substance: SODIUM BICARBONATE
     Indication: PH URINE INCREASED
     Dosage: 60 ML, QD
     Route: 042
     Dates: start: 20190701, end: 20190708
  20. SODIUM CHLORIDE. [Concomitant]
     Active Substance: SODIUM CHLORIDE
     Indication: HYPONATRAEMIA
     Dosage: 60 MG, QD
     Route: 042
     Dates: start: 20190708, end: 20190708
  21. COPANLISIB. [Suspect]
     Active Substance: COPANLISIB
     Indication: NON-HODGKIN^S LYMPHOMA RECURRENT
     Dosage: 45 MG, QD
     Route: 042
     Dates: start: 20190820, end: 20190820
  22. RITUXIMAB. [Suspect]
     Active Substance: RITUXIMAB
     Indication: NON-HODGKIN^S LYMPHOMA RECURRENT
     Dosage: 630 MG, QD
     Route: 042
     Dates: start: 20190701, end: 20190701
  23. TROPISETRON [Concomitant]
     Active Substance: TROPISETRON
     Indication: ANTIEMETIC SUPPORTIVE CARE
     Dosage: 4 MG, QD
     Route: 042
     Dates: start: 20190702, end: 20190702
  24. DIPHENHYDRAMINE. [Concomitant]
     Active Substance: DIPHENHYDRAMINE
     Indication: PROPHYLAXIS
     Dosage: 40 MG, QD
     Route: 030
     Dates: start: 20190701, end: 20190701
  25. TORASEMIDE [Concomitant]
     Active Substance: TORSEMIDE
     Indication: POLYURIA
     Dosage: 20 MG, QD
     Route: 042
     Dates: start: 20190704, end: 20190704
  26. ALBUMIN PREPARED FROM HUMAN PLASMA [Concomitant]
     Indication: HYPOALBUMINAEMIA
     Dosage: 100 ML, QD
     Route: 042
     Dates: start: 20190708, end: 20190708
  27. ALBUMIN PREPARED FROM HUMAN PLASMA [Concomitant]
     Indication: HYPOALBUMINAEMIA
     Dosage: 100 ML, QD
     Route: 042
     Dates: start: 20190812, end: 20190812
  28. POTASSIUM CHLORIDE. [Concomitant]
     Active Substance: POTASSIUM CHLORIDE
     Indication: HYPOKALAEMIA
     Dosage: 30 ML, QD
     Route: 048
     Dates: start: 20190708, end: 20190708
  29. POTASSIUM CHLORIDE. [Concomitant]
     Active Substance: POTASSIUM CHLORIDE
     Indication: HYPOKALAEMIA
     Dosage: 500 MG, TID
     Route: 048
     Dates: start: 20190810
  30. COPANLISIB. [Suspect]
     Active Substance: COPANLISIB
     Indication: NON-HODGKIN^S LYMPHOMA RECURRENT
     Dosage: 60 MG, QD
     Route: 042
     Dates: start: 20190716, end: 20190716
  31. COPANLISIB. [Suspect]
     Active Substance: COPANLISIB
     Indication: NON-HODGKIN^S LYMPHOMA RECURRENT
     Dosage: 45 MG, QD
     Route: 042
     Dates: start: 20190813, end: 20190813
  32. BENDAMUSTINE [Suspect]
     Active Substance: BENDAMUSTINE
     Indication: NON-HODGKIN^S LYMPHOMA RECURRENT
     Dosage: 152 MG, QD
     Route: 042
     Dates: start: 20190702, end: 20190702
  33. MOXIFLOXACIN HYDROCHLORIDE. [Concomitant]
     Active Substance: MOXIFLOXACIN HYDROCHLORIDE
     Indication: PROPHYLAXIS
     Dosage: 0.4 G, QD
     Route: 048
     Dates: start: 20190722, end: 20190726
  34. DIPHENHYDRAMINE. [Concomitant]
     Active Substance: DIPHENHYDRAMINE
     Indication: PROPHYLAXIS
     Dosage: 40 MG, QD
     Route: 030
     Dates: start: 20190813, end: 20190813
  35. MUCOPOLYSACCHARIDE POLYSULFATE [Concomitant]
     Indication: PROPHYLAXIS
     Dosage: 0.5 G, QD
     Dates: start: 20190701, end: 20190701
  36. OMEPRAZOLE. [Concomitant]
     Active Substance: OMEPRAZOLE
     Indication: ANTIEMETIC SUPPORTIVE CARE
     Dosage: 40 MG, QD
     Route: 042
     Dates: start: 20190701, end: 20190712
  37. CELEBREX [Concomitant]
     Active Substance: CELECOXIB
     Indication: PROPHYLAXIS
     Dosage: 200 MG, QD
     Route: 048
     Dates: start: 20190701, end: 20190701
  38. BACLOFEN. [Concomitant]
     Active Substance: BACLOFEN
     Indication: MUSCLE SPASMS
     Dosage: 10 MG, QD
     Route: 048
     Dates: start: 20190705, end: 20190708
  39. POTASSIUM CHLORIDE. [Concomitant]
     Active Substance: POTASSIUM CHLORIDE
     Indication: HYPOKALAEMIA
     Dosage: 7 ML, QD
     Route: 042
     Dates: start: 20190708, end: 20190708

REACTIONS (3)
  - Pneumonia [Recovered/Resolved]
  - Pneumonia [Recovering/Resolving]
  - Bone marrow failure [Recovered/Resolved]

NARRATIVE: CASE EVENT DATE: 20190704
